FAERS Safety Report 15597331 (Version 1)
Quarter: 2018Q4

REPORT INFORMATION
  Report Type: Spontaneous
  Country: GB (occurrence: GB)
  Receive Date: 20181108
  Receipt Date: 20181108
  Transmission Date: 20190205
  Serious: Yes (Other)
  Sender: FDA-Public Use
  Company Number: GB-LEO PHARMA-314763

PATIENT
  Age: 52 Year
  Sex: Male
  Weight: 94 kg

DRUGS (1)
  1. PICATO [Suspect]
     Active Substance: INGENOL MEBUTATE
     Indication: ACTINIC KERATOSIS
     Dosage: 1 TIMES 0.47G TUBE GEL PER DAY FOR THREE CONSECUTIVE DAYS SPREAD OVER 25 SQCM, AS PRESCRIBED.
     Route: 061
     Dates: start: 20181017, end: 20181019

REACTIONS (3)
  - Application site fissure [Not Recovered/Not Resolved]
  - Discomfort [Not Recovered/Not Resolved]
  - Application site vesicles [Not Recovered/Not Resolved]

NARRATIVE: CASE EVENT DATE: 20181019
